FAERS Safety Report 10038167 (Version 1)
Quarter: 2014Q1

REPORT INFORMATION
  Report Type: Spontaneous
  Country: US (occurrence: US)
  Receive Date: 20140326
  Receipt Date: 20140326
  Transmission Date: 20141002
  Serious: No
  Sender: FDA-Public Use
  Company Number: US-PFIZER INC-2014085139

PATIENT
  Age: 78 Year
  Sex: Female
  Weight: 81.63 kg

DRUGS (7)
  1. CELEBREX [Suspect]
     Indication: PAIN IN EXTREMITY
     Dosage: 200 MG, 1X/DAY
     Dates: start: 20140321, end: 20140323
  2. CELEBREX [Suspect]
     Indication: ARTHRALGIA
  3. NIFEDIPINE [Concomitant]
     Indication: HYPERTENSION
     Dosage: 30 MG, 2X/DAY
  4. ATENOLOL [Concomitant]
     Indication: HYPERTENSION
     Dosage: 25 MG, 1X/DAY
  5. BENAZEPRIL [Concomitant]
     Indication: HYPERTENSION
     Dosage: 40 MG, 2X/DAY
  6. FUROSEMIDE [Concomitant]
     Indication: MICTURITION DISORDER
     Dosage: UNK
     Dates: start: 201403
  7. POTASSIUM [Concomitant]
     Dosage: UNK
     Dates: start: 201403

REACTIONS (3)
  - Pain [Not Recovered/Not Resolved]
  - Pain in extremity [Not Recovered/Not Resolved]
  - Arthralgia [Not Recovered/Not Resolved]
